FAERS Safety Report 8939402 (Version 1)
Quarter: 2012Q4

REPORT INFORMATION
  Report Type: 
  Country: US (occurrence: US)
  Receive Date: 20121203
  Receipt Date: 20121203
  Transmission Date: 20130627
  Serious: No
  Sender: FDA-Public Use
  Company Number: US-PFIZER INC-2012300880

PATIENT
  Sex: Male
  Weight: 90.7 kg

DRUGS (1)
  1. CHANTIX [Suspect]
     Indication: TOBACCO USE DISORDER
     Dosage: UNK
     Dates: start: 201206, end: 20121127

REACTIONS (2)
  - Flatulence [Not Recovered/Not Resolved]
  - Abnormal dreams [Not Recovered/Not Resolved]
